FAERS Safety Report 4365107-6 (Version None)
Quarter: 2004Q2

REPORT INFORMATION
  Report Type: 
  Country: None (occurrence: None)
  Receive Date: 20040521
  Receipt Date: 20040407
  Transmission Date: 20050107
  Serious: Yes (Death, Life-Threatening)
  Sender: FDA-Public Use
  Company Number: F01200400735

PATIENT
  Age: 59 Year
  Sex: Male

DRUGS (10)
  1. OXALIPLATIN [Suspect]
     Indication: GASTRIC CANCER
     Dosage: 130 MG/M2 Q3W, INTRAVENOUS NOS
     Route: 042
     Dates: start: 20040311, end: 20040311
  2. OXALIPLATIN [Suspect]
     Indication: OESOPHAGEAL CARCINOMA
     Dosage: 130 MG/M2 Q3W, INTRAVENOUS NOS
     Route: 042
     Dates: start: 20040311, end: 20040311
  3. FLUOROURACIL [Suspect]
     Dosage: 200 MG/M2, 50 MG/M2 Q3W; INTRAVENOUS NOS
     Route: 042
  4. EPIRUBICIN [Suspect]
     Dosage: 50 MG.M2 Q3W; INTRAVENOUS BOLUS
     Route: 040
  5. WARFARIN SODIUM [Concomitant]
  6. CYCLIZINE [Concomitant]
  7. LANSOPRAZOLE [Concomitant]
  8. THYROXIN (LEVOTHYROXINE SODIUM) [Concomitant]
  9. TEMAZEPAM [Concomitant]
  10. CHLORPROMAZINE [Concomitant]

REACTIONS (4)
  - DEEP VEIN THROMBOSIS [None]
  - INTERNATIONAL NORMALISED RATIO INCREASED [None]
  - METASTASES TO LIVER [None]
  - PULMONARY EMBOLISM [None]
